FAERS Safety Report 8809191 (Version 1)
Quarter: 2012Q4

REPORT INFORMATION
  Report Type: Spontaneous
  Country: US (occurrence: None)
  Receive Date: 20120920
  Receipt Date: 20120920
  Transmission Date: 20130627
  Serious: Yes (Hospitalization)
  Sender: FDA-Public Use
  Company Number: 2012090073

PATIENT
  Age: 34 Year
  Sex: Female

DRUGS (4)
  1. ZOLPIDEM [Suspect]
  2. FENTANYL [Suspect]
     Route: 062
  3. OXYCODONE [Suspect]
  4. LORAZEPAM (LORAZEPAM) [Suspect]

REACTIONS (8)
  - Unresponsive to stimuli [None]
  - Blood pressure increased [None]
  - Oxygen saturation decreased [None]
  - Electrocardiogram T wave inversion [None]
  - Pupillary reflex impaired [None]
  - Coma scale abnormal [None]
  - Stress cardiomyopathy [None]
  - Overdose [None]
